FAERS Safety Report 21860882 (Version 7)
Quarter: 2023Q2

REPORT INFORMATION
  Report Type: Spontaneous
  Country: AR (occurrence: AR)
  Receive Date: 20230113
  Receipt Date: 20230508
  Transmission Date: 20230722
  Serious: Yes (Death, Hospitalization, Other)
  Sender: FDA-Public Use
  Company Number: AR-GILEAD-2023-0612180

PATIENT
  Age: 62 Year
  Sex: Male

DRUGS (6)
  1. HARVONI [Suspect]
     Active Substance: LEDIPASVIR\SOFOSBUVIR
     Indication: Hepatitis C
     Dosage: 1 TABLET QD
     Route: 048
     Dates: start: 202210, end: 202212
  2. CARVEDILOL [Concomitant]
     Active Substance: CARVEDILOL
     Dosage: 3,125 MG/12 HOURS- ORALLY
     Route: 048
  3. RIFAXIMIN [Concomitant]
     Active Substance: RIFAXIMIN
     Dosage: 550 MG/12 HOURS
  4. FUROSEMIDE [Concomitant]
     Active Substance: FUROSEMIDE
     Dosage: 20 MG/24 HOURS
  5. SPIRONOLACTONE [Concomitant]
     Active Substance: SPIRONOLACTONE
     Dosage: 50MG/24HOURS
  6. VITAMINS NOS [Concomitant]
     Active Substance: VITAMINS

REACTIONS (13)
  - Death [Fatal]
  - Multiple organ dysfunction syndrome [Fatal]
  - Atrioventricular block complete [Fatal]
  - Bundle branch block right [Fatal]
  - Ascites [Unknown]
  - Hyperglycaemia [Unknown]
  - Metabolic acidosis [Unknown]
  - Pyrexia [Unknown]
  - Bacteraemia [Unknown]
  - Liver disorder [Unknown]
  - Urinary tract infection [Unknown]
  - Oedema [Unknown]
  - Renal disorder [Unknown]
